FAERS Safety Report 22147972 (Version 1)
Quarter: 2023Q1

REPORT INFORMATION
  Report Type: Spontaneous
  Country: US (occurrence: None)
  Receive Date: 20230328
  Receipt Date: 20230328
  Transmission Date: 20230418
  Serious: No
  Sender: FDA-Public Use
  Company Number: 2023A053745

PATIENT
  Sex: Female

DRUGS (1)
  1. SYMBICORT [Suspect]
     Active Substance: BUDESONIDE\FORMOTEROL FUMARATE DIHYDRATE
     Indication: Chronic obstructive pulmonary disease
     Dosage: 160/4.5MCG, TWICE A DAY
     Route: 055
     Dates: start: 2019

REACTIONS (4)
  - Musculoskeletal stiffness [Unknown]
  - Sciatica [Unknown]
  - Wrong technique in device usage process [Unknown]
  - Device malfunction [Unknown]
